FAERS Safety Report 16732259 (Version 1)
Quarter: 2019Q3

REPORT INFORMATION
  Report Type: Report from Study
  Country: US (occurrence: US)
  Receive Date: 20190822
  Receipt Date: 20190822
  Transmission Date: 20191005
  Serious: Yes (Hospitalization)
  Sender: FDA-Public Use
  Company Number: PHEH2019US034482

PATIENT
  Age: 24 Year
  Sex: Male
  Weight: 104.49 kg

DRUGS (1)
  1. ILARIS [Suspect]
     Active Substance: CANAKINUMAB
     Indication: PYREXIA
     Dosage: 150 MG, UNK
     Route: 058

REACTIONS (2)
  - Liver disorder [Unknown]
  - Splenomegaly [Unknown]

NARRATIVE: CASE EVENT DATE: 20190805
